FAERS Safety Report 23432123 (Version 1)
Quarter: 2024Q1

REPORT INFORMATION
  Report Type: Spontaneous
  Country: DE (occurrence: DE)
  Receive Date: 20240123
  Receipt Date: 20240123
  Transmission Date: 20240409
  Serious: Yes (Death, Life-Threatening, Other)
  Sender: FDA-Public Use
  Company Number: DE-MLMSERVICE-2024010547597821

PATIENT
  Age: 74 Year

DRUGS (13)
  1. CISPLATIN [Suspect]
     Active Substance: CISPLATIN
     Indication: Cholangiocarcinoma
     Dosage: DOSAGE TEXT:	25 MG/M2 ON DAY 1 AND 8
     Dates: end: 201907
  2. FLUOROURACIL [Suspect]
     Active Substance: FLUOROURACIL
     Indication: Cholangiocarcinoma
     Dosage: 2400 MG/M2 AS 48-H-INFUSION EVERY 2 WEEKS
     Dates: end: 202003
  3. GEMCITABINE HYDROCHLORIDE [Suspect]
     Active Substance: GEMCITABINE HYDROCHLORIDE
     Indication: Cholangiocarcinoma
     Dosage: 1000  MG/M2 ON DAY 1 AND 8
     Dates: end: 201907
  4. IRINOTECAN [Suspect]
     Active Substance: IRINOTECAN
     Indication: Cholangiocarcinoma
     Dosage: FOUR CYCLES OF IRINOTECAN 180 MG/M2 EVERY 2 WEEKS
     Dates: end: 202003
  5. OXALIPLATIN [Suspect]
     Active Substance: OXALIPLATIN
     Indication: Cholangiocarcinoma
     Dosage: 100  MG/M2 EVERY 2 WEEKS FOR 12 CYCLES
     Dates: end: 202002
  6. FOLIC ACID [Suspect]
     Active Substance: FOLIC ACID
     Indication: Cholangiocarcinoma
     Dosage: FOUR CYCLES OF  400 MG/M2 EVERY 2 WEEKS
     Dates: end: 202003
  7. PEMIGATINIB [Suspect]
     Active Substance: PEMIGATINIB
     Indication: Cholangiocarcinoma
     Dosage: DOSAGE TEXT:	13.5 MG/DAY FOR 2 WEEKS, FOLLOWED BY 1-WEEK PAUSE.
     Dates: end: 202005
  8. ERYTHROPOIETIN [Concomitant]
     Active Substance: ERYTHROPOIETIN
     Indication: Anaemia
  9. FLUOROURACIL [Suspect]
     Active Substance: FLUOROURACIL
     Indication: Cholangiocarcinoma
     Dosage: 400 MG/M2 AS BOLUS EVERY 2 WEEKS FOR 12 CYCLES
     Dates: end: 202002
  10. FOLIC ACID [Suspect]
     Active Substance: FOLIC ACID
     Indication: Cholangiocarcinoma
     Dosage: DOSAGE TEXT:	400 MG/M2 EVERY 2 WEEKS FOR 12 CYCLES
     Dates: end: 202002
  11. FLUOROURACIL [Suspect]
     Active Substance: FLUOROURACIL
     Indication: Cholangiocarcinoma
     Dosage: 400 MG/M2 AS BOLUS
  12. FLUOROURACIL [Suspect]
     Active Substance: FLUOROURACIL
     Indication: Cholangiocarcinoma
     Dosage: 3000 MG/M2 AS 48-H INFUSION 48-H INFUSION, EVERY 2 WEEKS FOR 12 CYCLES
     Dates: end: 202002
  13. PEMIGATINIB [Suspect]
     Active Substance: PEMIGATINIB
     Indication: Cholangiocarcinoma
     Dosage: DOSAGE TEXT:	9 MG/DAY FOR 2 WEEKS FOLLOWED BY 1-WEEKPAUSE
     Dates: start: 2021, end: 2021

REACTIONS (4)
  - Pneumonia [Fatal]
  - Myelodysplastic syndrome [Fatal]
  - Acute myeloid leukaemia [Fatal]
  - Off label use [Unknown]
